FAERS Safety Report 9686360 (Version 1)
Quarter: 2013Q4

REPORT INFORMATION
  Report Type: Spontaneous
  Country: US (occurrence: US)
  Receive Date: 20131113
  Receipt Date: 20131113
  Transmission Date: 20140711
  Serious: Yes (Hospitalization)
  Sender: FDA-Public Use
  Company Number: US-ELI_LILLY_AND_COMPANY-US201311002540

PATIENT
  Age: 44 Year
  Sex: Male

DRUGS (7)
  1. EFFIENT [Suspect]
     Dosage: UNK
     Dates: end: 20131023
  2. METOPROLOL [Concomitant]
  3. RANEXA [Concomitant]
  4. ISOSORBIDE [Concomitant]
  5. LOVAZA [Concomitant]
  6. CRESTOR [Concomitant]
  7. ASPIRIN [Concomitant]

REACTIONS (3)
  - Epistaxis [Recovered/Resolved]
  - Accelerated hypertension [Recovered/Resolved]
  - Hypokalaemia [Recovered/Resolved]
